FAERS Safety Report 4844335-7 (Version None)
Quarter: 2005Q4

REPORT INFORMATION
  Report Type: 
  Country: None (occurrence: None)
  Receive Date: 20051202
  Receipt Date: 20051004
  Transmission Date: 20060501
  Serious: Yes (Hospitalization, Disabling)
  Sender: FDA-Public Use
  Company Number: US-MERCK-0510USA03207

PATIENT
  Age: 65 Year
  Sex: Female
  Weight: 99 kg

DRUGS (4)
  1. VIOXX [Suspect]
     Indication: OEDEMA PERIPHERAL
     Route: 048
     Dates: start: 19990101, end: 20040101
  2. VIOXX [Suspect]
     Indication: PAIN IN EXTREMITY
     Route: 048
     Dates: start: 19990101, end: 20040101
  3. VIOXX [Suspect]
     Route: 048
     Dates: start: 19990101, end: 20040101
  4. VIOXX [Suspect]
     Route: 048
     Dates: start: 19990101, end: 20040101

REACTIONS (8)
  - CEREBROVASCULAR ACCIDENT [None]
  - CHEST PAIN [None]
  - HAEMORRHAGE [None]
  - HEART RATE DECREASED [None]
  - LIMB INJURY [None]
  - PAIN IN EXTREMITY [None]
  - POISONING [None]
  - SKIN LACERATION [None]
